FAERS Safety Report 9726298 (Version 2)
Quarter: 2013Q4

REPORT INFORMATION
  Report Type: Spontaneous
  Country: US (occurrence: US)
  Receive Date: 20131203
  Receipt Date: 20131203
  Transmission Date: 20140711
  Serious: Yes (Hospitalization)
  Sender: FDA-Public Use
  Company Number: US-BAXTER-2013BAX043915

PATIENT
  Sex: Male

DRUGS (10)
  1. DIANEAL LOW CALCIUM [Suspect]
     Indication: PERITONEAL DIALYSIS
     Route: 033
     Dates: end: 20131108
  2. DIANEAL LOW CALCIUM [Suspect]
     Route: 033
     Dates: start: 20131112
  3. DIANEAL LOW CALCIUM [Suspect]
     Indication: PERITONEAL DIALYSIS
     Route: 033
     Dates: end: 20131108
  4. DIANEAL LOW CALCIUM [Suspect]
     Route: 033
     Dates: start: 20131112
  5. DIANEAL LOW CALCIUM [Suspect]
     Indication: PERITONEAL DIALYSIS
     Route: 033
     Dates: end: 20131108
  6. DIANEAL LOW CALCIUM [Suspect]
     Route: 033
     Dates: start: 20131112
  7. DIANEAL LOW CALCIUM (ULTRABAG) [Suspect]
     Indication: PERITONEAL DIALYSIS
     Route: 033
     Dates: end: 20131108
  8. DIANEAL LOW CALCIUM (ULTRABAG) [Suspect]
     Route: 033
     Dates: start: 20131112
  9. DIANEAL LOW CALCIUM (ULTRABAG) [Suspect]
     Indication: PERITONEAL DIALYSIS
     Route: 033
     Dates: end: 20131108
  10. DIANEAL LOW CALCIUM (ULTRABAG) [Suspect]
     Route: 033
     Dates: start: 20131112

REACTIONS (2)
  - Dehydration [Recovered/Resolved]
  - Wrong drug administered [Unknown]
